FAERS Safety Report 8919594 (Version 3)
Quarter: 2014Q2

REPORT INFORMATION
  Report Type: Spontaneous
  Country: US (occurrence: US)
  Receive Date: 20121121
  Receipt Date: 20140411
  Transmission Date: 20141212
  Serious: Yes (Hospitalization)
  Sender: FDA-Public Use
  Company Number: US-BAYER-2012-120310

PATIENT
  Age: 22 Year
  Sex: Female
  Weight: 92.97 kg

DRUGS (4)
  1. YAZ [Suspect]
     Indication: CONTRACEPTION
     Dosage: UNK
     Dates: start: 20110218, end: 20110929
  2. LORTAB [Concomitant]
     Dosage: UNK
     Dates: start: 2011
  3. CITALOPRAM [Concomitant]
     Dosage: 40 MG, UNK
     Dates: start: 20111107
  4. METHYLPHENIDATE [Concomitant]
     Dosage: 10 MG, UNK
     Dates: start: 20111107

REACTIONS (8)
  - Cholecystectomy [None]
  - Pain [None]
  - Injury [None]
  - General physical health deterioration [None]
  - Anxiety [None]
  - Anhedonia [None]
  - Emotional distress [None]
  - Pain [None]
